FAERS Safety Report 4310334-7 (Version None)
Quarter: 2004Q1

REPORT INFORMATION
  Report Type: 
  Country: None (occurrence: None)
  Receive Date: 20040303
  Receipt Date: 20020503
  Transmission Date: 20041129
  Serious: Yes (Hospitalization)
  Sender: FDA-Public Use
  Company Number: CH-ROCHE-312867

PATIENT
  Age: 68 Year
  Sex: Female

DRUGS (15)
  1. DACLIZUMAB [Suspect]
     Route: 065
  2. DACLIZUMAB [Suspect]
     Route: 065
  3. MYCOPHENOLATE MOFETIL [Suspect]
     Route: 065
  4. NEORAL [Concomitant]
     Route: 065
  5. PREDNIZON [Concomitant]
     Route: 065
  6. METOPROLOL SUCCINATE [Concomitant]
     Indication: DRUG USE FOR UNKNOWN INDICATION
     Route: 065
  7. CIPROXIN [Concomitant]
  8. MINIPRESS RETARD [Concomitant]
  9. CALCIUM EFFERVESCENT [Concomitant]
  10. VI-DE 3 [Concomitant]
  11. RANITIDINE [Concomitant]
  12. AMPHO MORONAL [Concomitant]
  13. AUGMENTIN [Concomitant]
  14. ULCOGANT [Concomitant]
  15. BENZALKONIUM CHLORIDE [Concomitant]

REACTIONS (5)
  - BASAL CELL CARCINOMA [None]
  - BLOOD CREATININE INCREASED [None]
  - CYTOMEGALOVIRUS INFECTION [None]
  - LYMPHOCELE [None]
  - PYREXIA [None]
